FAERS Safety Report 20898974 (Version 3)
Quarter: 2022Q4

REPORT INFORMATION
  Report Type: Spontaneous
  Country: CA (occurrence: CA)
  Receive Date: 20220601
  Receipt Date: 20221212
  Transmission Date: 20230113
  Serious: Yes (Hospitalization)
  Sender: FDA-Public Use
  Company Number: CA-CELLTRION INC.-2022CA008072

PATIENT

DRUGS (4)
  1. INFLECTRA [Suspect]
     Active Substance: INFLIXIMAB-DYYB
     Indication: Colitis ulcerative
     Dosage: 600 MG WEEK 0 DOSE AND HOSPITAL. Q2,6 WEEKS, THEN EVERY 8 WEEKS/ (10MG/KG IN HOSPITAL)
     Route: 042
     Dates: start: 20220421, end: 20220421
  2. INFLECTRA [Suspect]
     Active Substance: INFLIXIMAB-DYYB
     Dosage: 300 MG, Q 2, 6, THEN EVERY 8 WEEKS
     Route: 042
     Dates: start: 20220518
  3. INFLECTRA [Suspect]
     Active Substance: INFLIXIMAB-DYYB
     Dosage: 300 MG, Q 2, 6, THEN EVERY 8 WEEKS
     Route: 042
     Dates: start: 20221004
  4. INFLECTRA [Suspect]
     Active Substance: INFLIXIMAB-DYYB
     Dosage: 300 MG, Q 2, 6, THEN EVERY 8 WEEKS
     Route: 042
     Dates: start: 20221201

REACTIONS (9)
  - Herpes zoster [Recovering/Resolving]
  - Rash [Not Recovered/Not Resolved]
  - Rash erythematous [Unknown]
  - Blister [Recovering/Resolving]
  - Post herpetic neuralgia [Unknown]
  - Weight decreased [Recovered/Resolved]
  - Off label use [Unknown]
  - Off label use [Unknown]
  - Inappropriate schedule of product administration [Unknown]

NARRATIVE: CASE EVENT DATE: 20220101
